FAERS Safety Report 25499641 (Version 2)
Quarter: 2025Q4

REPORT INFORMATION
  Report Type: Spontaneous
  Country: US (occurrence: US)
  Receive Date: 20250701
  Receipt Date: 20251231
  Transmission Date: 20260117
  Serious: No
  Sender: ORPHAZYME
  Company Number: US-ZEVRA DENMARK A/S-ORP-000548

PATIENT
  Sex: Female

DRUGS (1)
  1. MIPLYFFA [Suspect]
     Active Substance: ARIMOCLOMOL CITRATE
     Indication: Niemann-Pick disease
     Dosage: UNK

REACTIONS (4)
  - Product distribution issue [Unknown]
  - Product packaging issue [Unknown]
  - Product size issue [Unknown]
  - Product use complaint [Unknown]
